FAERS Safety Report 5840954-X (Version None)
Quarter: 2008Q3

REPORT INFORMATION
  Report Type: 
  Country: None (occurrence: None)
  Receive Date: 20080731
  Receipt Date: 20080603
  Transmission Date: 20090109
  Serious: Yes (Other)
  Sender: FDA-Public Use
  Company Number: US200806001490

PATIENT
  Age: 60 Year
  Sex: Female
  Weight: 66.9 kg

DRUGS (16)
  1. BYETTA [Suspect]
     Indication: TYPE 2 DIABETES MELLITUS
     Dosage: 5 UG, 2/D, SUBCUTANEOUS; 5 UG, EACH EVENING, SUBCUTANEOUS
     Route: 058
     Dates: start: 20080301, end: 20080101
  2. BYETTA [Suspect]
     Indication: TYPE 2 DIABETES MELLITUS
     Dosage: 5 UG, 2/D, SUBCUTANEOUS; 5 UG, EACH EVENING, SUBCUTANEOUS
     Route: 058
     Dates: start: 20080301, end: 20080530
  3. EXENATIDE 5MCG PEN, DISPOSABLE DEVICE (EXENATIDE PEN (5MCG)) PEN,DISPO [Concomitant]
  4. LEVSIN (HYOSCYAMINE SULFATE) [Concomitant]
  5. MIRALAX [Concomitant]
  6. PREVACID [Concomitant]
  7. PRAVASTATIN [Concomitant]
  8. SKELAXIN [Concomitant]
  9. LISINOPRIL [Concomitant]
  10. AMBIEN [Concomitant]
  11. ASPIRIN [Concomitant]
  12. MULTIVITAMIN [Concomitant]
  13. TOPAMAX [Concomitant]
  14. GLIPIZIDE (GLIPIZIDE0 [Concomitant]
  15. METFORMIN HCL [Concomitant]
  16. PRANDIN /USA/ (REPAGLINIDE) [Concomitant]

REACTIONS (9)
  - ANAPHYLACTIC REACTION [None]
  - DYSPNOEA [None]
  - ERYTHEMA [None]
  - OEDEMA [None]
  - OEDEMA PERIPHERAL [None]
  - PHARYNGEAL OEDEMA [None]
  - PRURITUS GENERALISED [None]
  - URINARY TRACT INFECTION [None]
  - WEIGHT DECREASED [None]
